FAERS Safety Report 13800766 (Version 2)
Quarter: 2017Q4

REPORT INFORMATION
  Report Type: Spontaneous
  Country: US (occurrence: US)
  Receive Date: 20170727
  Receipt Date: 20171016
  Transmission Date: 20180320
  Serious: Yes (Death)
  Sender: FDA-Public Use
  Company Number: US-ASTELLAS-2017US029288

PATIENT
  Age: 68 Year
  Sex: Male

DRUGS (1)
  1. MYCAMINE [Suspect]
     Active Substance: MICAFUNGIN SODIUM
     Indication: CANDIDA INFECTION
     Dosage: 100 MG, OTHER (ONCE)
     Route: 042
     Dates: start: 20170613, end: 20170621

REACTIONS (1)
  - Death [Fatal]

NARRATIVE: CASE EVENT DATE: 20170621
